FAERS Safety Report 9295242 (Version 1)
Quarter: 2013Q2

REPORT INFORMATION
  Report Type: Report from Study
  Country: AR (occurrence: AR)
  Receive Date: 20130517
  Receipt Date: 20130517
  Transmission Date: 20140414
  Serious: Yes (Hospitalization)
  Sender: FDA-Public Use
  Company Number: PHHY2013AR048344

PATIENT
  Age: 27 Year
  Sex: Male

DRUGS (4)
  1. LAPENAX [Suspect]
     Indication: SCHIZOPHRENIA
     Dosage: 100 MG, UNK
     Route: 048
     Dates: start: 20130410
  2. HALOPERIDOL [Concomitant]
     Dosage: UNK UKN, UNK
  3. ROSUVASTATIN [Concomitant]
     Dosage: UNK UKN, UNK
  4. BIPERIDEN [Concomitant]
     Dosage: UNK UKN, UNK

REACTIONS (5)
  - Hypoxia [Recovered/Resolved]
  - Cyanosis [Recovered/Resolved]
  - Movement disorder [Recovered/Resolved]
  - Pyrexia [Recovered/Resolved]
  - White blood cell count increased [Unknown]
